FAERS Safety Report 6978963-X (Version None)
Quarter: 2010Q3

REPORT INFORMATION
  Report Type: 
  Country: None (occurrence: None)
  Receive Date: 20100824
  Receipt Date: 20100719
  Transmission Date: 20110219
  Serious: Yes (Other)
  Sender: FDA-Public Use
  Company Number: 307709

PATIENT
  Age: 50 Year
  Sex: Male
  Weight: 117.9 kg

DRUGS (9)
  1. VICTOZA [Suspect]
     Indication: TYPE 2 DIABETES MELLITUS
     Dosage: 0.6 MG, QD, SUBCUTANEOUS
     Route: 058
     Dates: start: 20100218, end: 20100224
  2. AMARYL [Concomitant]
  3. TOPROL-XL [Concomitant]
  4. GLUCOPHAGE /00082701/ (METFORMIN) [Concomitant]
  5. FISH OIL (FISH OIL) [Concomitant]
  6. CRESTOR [Concomitant]
  7. LISINOPRIL [Concomitant]
  8. LASIX [Concomitant]
  9. ASPIRIN [Concomitant]

REACTIONS (1)
  - PANCREATITIS ACUTE [None]
